FAERS Safety Report 4685808-X (Version None)
Quarter: 2005Q2

REPORT INFORMATION
  Report Type: 
  Country: None (occurrence: None)
  Receive Date: 20050609
  Receipt Date: 20050601
  Transmission Date: 20051028
  Serious: Yes (Other)
  Sender: FDA-Public Use
  Company Number: US-JNJFOC-20050600572

PATIENT
  Age: 49 Year
  Sex: Female
  Weight: 81.19 kg

DRUGS (9)
  1. REMICADE [Suspect]
     Indication: RHEUMATOID ARTHRITIS
     Route: 042
  2. LEXAPRO [Concomitant]
  3. ARAVA [Concomitant]
  4. CRESTOR [Concomitant]
  5. PROTONIX [Concomitant]
  6. SYNTHROID [Concomitant]
  7. LORTAB [Concomitant]
  8. LORTAB [Concomitant]
     Indication: PAIN
  9. XANAX [Concomitant]

REACTIONS (1)
  - DYSARTHRIA [None]
